FAERS Safety Report 13728853 (Version 1)
Quarter: 2017Q3

REPORT INFORMATION
  Report Type: Spontaneous
  Country: US (occurrence: US)
  Receive Date: 20170707
  Receipt Date: 20170707
  Transmission Date: 20171127
  Serious: No
  Sender: FDA-Public Use
  Company Number: US-BEH-2017081826

PATIENT
  Sex: Male
  Weight: 90.7 kg

DRUGS (1)
  1. HAEMATE P [Suspect]
     Active Substance: ANTIHEMOPHILIC FACTOR HUMAN
     Indication: VON WILLEBRAND^S DISEASE
     Dosage: UNK
     Route: 042
     Dates: start: 2003, end: 2014

REACTIONS (2)
  - Von Willebrand^s factor activity increased [Unknown]
  - Platelet destruction increased [Unknown]

NARRATIVE: CASE EVENT DATE: 2014
